FAERS Safety Report 11680513 (Version 2)
Quarter: 2015Q4

REPORT INFORMATION
  Report Type: Spontaneous
  Country: US (occurrence: US)
  Receive Date: 20151027
  Receipt Date: 20151104
  Transmission Date: 20160304
  Serious: No
  Sender: FDA-Public Use
  Company Number: US-ELI_LILLY_AND_COMPANY-US201009004970

PATIENT
  Age: 54 Year
  Sex: Female

DRUGS (5)
  1. FORTEO [Suspect]
     Active Substance: TERIPARATIDE
     Dosage: 20 UG, DAILY (1/D)
  2. FORTEO [Suspect]
     Active Substance: TERIPARATIDE
     Indication: OSTEOPOROSIS
     Dosage: 20 UG, DAILY (1/D)
     Dates: start: 200909
  3. POTASSIUM [Concomitant]
     Active Substance: POTASSIUM
  4. FORTEO [Suspect]
     Active Substance: TERIPARATIDE
     Dosage: 20 UG, DAILY (1/D)
  5. FORTEO [Suspect]
     Active Substance: TERIPARATIDE
     Dosage: 20 UG, QD

REACTIONS (17)
  - Ear infection [Recovered/Resolved]
  - Diabetes mellitus inadequate control [Unknown]
  - Back pain [Unknown]
  - Intestinal ulcer [Unknown]
  - Intervertebral disc disorder [Unknown]
  - Body height decreased [Unknown]
  - Injection site bruising [Unknown]
  - Stress [Unknown]
  - Back pain [Unknown]
  - Dizziness [Unknown]
  - Nerve compression [Unknown]
  - Staphylococcal infection [Recovered/Resolved]
  - Chondropathy [Unknown]
  - Blood potassium abnormal [Unknown]
  - Scoliosis [Unknown]
  - Blood calcium increased [Unknown]
  - Bone disorder [Unknown]

NARRATIVE: CASE EVENT DATE: 200912
